FAERS Safety Report 10506951 (Version 3)
Quarter: 2014Q4

REPORT INFORMATION
  Report Type: Spontaneous
  Country: NL (occurrence: NL)
  Receive Date: 20141009
  Receipt Date: 20141009
  Transmission Date: 20150528
  Serious: Yes (Other)
  Sender: FDA-Public Use
  Company Number: NL-JNJFOC-20130213125

PATIENT
  Age: 3 Year
  Sex: Female

DRUGS (4)
  1. HALOPERIDOL. [Suspect]
     Active Substance: HALOPERIDOL
     Indication: DELIRIUM
     Dosage: ON DAY 3
     Route: 042
  2. HALOPERIDOL. [Suspect]
     Active Substance: HALOPERIDOL
     Indication: DELIRIUM
     Dosage: ON DAY 1
     Route: 042
  3. HALOPERIDOL. [Suspect]
     Active Substance: HALOPERIDOL
     Indication: DELIRIUM
     Dosage: ON DAY 2
     Route: 042
  4. HALOPERIDOL. [Suspect]
     Active Substance: HALOPERIDOL
     Indication: DELIRIUM
     Dosage: ON DAY 4
     Route: 042

REACTIONS (5)
  - Product use issue [Unknown]
  - Oculogyric crisis [Recovered/Resolved]
  - Incorrect route of drug administration [Unknown]
  - Drooling [Recovered/Resolved]
  - Pyrexia [Recovered/Resolved]
